FAERS Safety Report 9648556 (Version 2)
Quarter: 2013Q4

REPORT INFORMATION
  Report Type: Spontaneous
  Country: US (occurrence: US)
  Receive Date: 20131028
  Receipt Date: 20131212
  Transmission Date: 20140711
  Serious: Yes (Hospitalization, Other)
  Sender: FDA-Public Use
  Company Number: US-TARO-2013P1020281

PATIENT
  Age: 50 Year
  Sex: Female
  Weight: 61.24 kg

DRUGS (3)
  1. NYSTATIN ORAL SUSPENSION USP 100,000 UNITS/ML [Suspect]
     Indication: ORAL CANDIDIASIS
     Route: 048
     Dates: start: 20100602
  2. METOPROLOL [Concomitant]
     Route: 048
  3. ASPIRIN [Concomitant]
     Route: 048

REACTIONS (17)
  - Lacunar infarction [Unknown]
  - Headache [Recovered/Resolved]
  - Chest pain [Recovered/Resolved]
  - Precancerous cells present [Recovered/Resolved]
  - Neck pain [Recovered/Resolved]
  - Dysphagia [Recovered/Resolved]
  - Pain [Recovered/Resolved]
  - Hypercoagulation [Recovered/Resolved]
  - Coeliac disease [Unknown]
  - Dyspnoea [Recovered/Resolved]
  - Palpitations [Recovered/Resolved]
  - Rash [Recovered/Resolved]
  - False positive investigation result [Unknown]
  - Computerised tomogram head abnormal [Unknown]
  - Malaise [Unknown]
  - Abdominal pain [Unknown]
  - Nausea [Unknown]
